FAERS Safety Report 10095510 (Version 2)
Quarter: 2014Q2

REPORT INFORMATION
  Report Type: Spontaneous
  Country: IT (occurrence: IT)
  Receive Date: 20140422
  Receipt Date: 20140618
  Transmission Date: 20141212
  Serious: Yes (Hospitalization)
  Sender: FDA-Public Use
  Company Number: IT-WATSON-2014-07704

PATIENT
  Age: 73 Year
  Sex: Female
  Weight: 80 kg

DRUGS (2)
  1. DOXAZOSIN (UNKNOWN) [Suspect]
     Indication: OEDEMA PERIPHERAL
     Dosage: 4 MG, TOTAL
     Route: 048
     Dates: start: 20140130, end: 20140130
  2. LEVOCETIRIZINE [Concomitant]
     Indication: PRODUCT USED FOR UNKNOWN INDICATION
     Dosage: 5 MG, UNKNOWN
     Route: 048

REACTIONS (3)
  - Syncope [Recovered/Resolved]
  - Vertigo [Recovered/Resolved]
  - Presyncope [Recovered/Resolved]
